FAERS Safety Report 7221706-5 (Version None)
Quarter: 2011Q1

REPORT INFORMATION
  Report Type: 
  Country: None (occurrence: None)
  Receive Date: 20110112
  Receipt Date: 20110107
  Transmission Date: 20110831
  Serious: Yes (Hospitalization)
  Sender: FDA-Public Use
  Company Number: FR-ROCHE-752254

PATIENT
  Sex: Male

DRUGS (4)
  1. AVASTIN [Suspect]
     Indication: COLON CANCER
     Route: 042
     Dates: start: 20100823, end: 20100915
  2. 5-FU [Concomitant]
     Dates: start: 20100823
  3. CAMPTOSAR [Concomitant]
     Indication: COLON CANCER
     Dates: start: 20100823
  4. 5-FU [Concomitant]
     Indication: COLON CANCER
     Dosage: 8 CYCLES

REACTIONS (2)
  - DISEASE PROGRESSION [None]
  - RENAL IMPAIRMENT [None]
